FAERS Safety Report 4436599-9 (Version None)
Quarter: 2004Q3

REPORT INFORMATION
  Report Type: 
  Country: None (occurrence: None)
  Receive Date: 20040830
  Receipt Date: 20040706
  Transmission Date: 20050211
  Serious: Yes (Hospitalization)
  Sender: FDA-Public Use
  Company Number: US-BRISTOL-MYERS SQUIBB COMPANY-12638912

PATIENT
  Age: 11 Year
  Sex: Male

DRUGS (1)
  1. ABILIFY [Suspect]
     Indication: PERVASIVE DEVELOPMENTAL DISORDER

REACTIONS (3)
  - DYSPNOEA [None]
  - DYSTONIA [None]
  - MUSCULOSKELETAL STIFFNESS [None]
